FAERS Safety Report 18733569 (Version 1)
Quarter: 2021Q1

REPORT INFORMATION
  Report Type: Spontaneous
  Country: US (occurrence: US)
  Receive Date: 20210113
  Receipt Date: 20210113
  Transmission Date: 20210419
  Serious: Yes (Death, Other)
  Sender: FDA-Public Use
  Company Number: US-AMGEN-USASP2021002824

PATIENT
  Sex: Male

DRUGS (5)
  1. OXALIPLATIN. [Concomitant]
     Active Substance: OXALIPLATIN
     Indication: MALIGNANT PERITONEAL NEOPLASM
     Dosage: UNK
  2. FOLINIC ACID [Concomitant]
     Active Substance: LEUCOVORIN
     Indication: MALIGNANT PERITONEAL NEOPLASM
     Dosage: UNK
  3. PANITUMUMAB [Suspect]
     Active Substance: PANITUMUMAB
     Indication: MALIGNANT PERITONEAL NEOPLASM
     Dosage: UNK
     Route: 065
  4. 5?FU [FLUOROURACIL] [Concomitant]
     Active Substance: FLUOROURACIL
     Indication: MALIGNANT PERITONEAL NEOPLASM
     Dosage: UNK
  5. IRINOTECAN [Concomitant]
     Active Substance: IRINOTECAN
     Indication: MALIGNANT PERITONEAL NEOPLASM
     Dosage: UNK

REACTIONS (1)
  - Death [Fatal]
